FAERS Safety Report 25567539 (Version 1)
Quarter: 2025Q3

REPORT INFORMATION
  Report Type: Spontaneous
  Country: CN (occurrence: CN)
  Receive Date: 20250716
  Receipt Date: 20250716
  Transmission Date: 20251021
  Serious: Yes (Hospitalization, Other)
  Sender: BAYER HEALTHCARE PHARMACEUTICALS INC.
  Company Number: CN-BAYER-2025A093112

PATIENT
  Age: 69 Year
  Sex: Female
  Weight: 50.7 kg

DRUGS (4)
  1. GLUCOBAY [Interacting]
     Active Substance: ACARBOSE
     Indication: Type 2 diabetes mellitus
     Dosage: 50 MG, TID
     Route: 048
     Dates: start: 20240722, end: 20250704
  2. INSULIN ASPART\INSULIN DEGLUDEC [Interacting]
     Active Substance: INSULIN ASPART\INSULIN DEGLUDEC
     Indication: Type 2 diabetes mellitus
     Dosage: 12 U, BID, BREAKFAST AND DINNER TIME
     Route: 058
     Dates: start: 20240722, end: 20250704
  3. INSULIN ASPART\INSULIN DEGLUDEC [Interacting]
     Active Substance: INSULIN ASPART\INSULIN DEGLUDEC
     Indication: Type 2 diabetes mellitus
     Dosage: 10 U, BID, BREAKFAST AND DINNER TIME
     Route: 058
     Dates: start: 20250705
  4. METFORMIN HYDROCHLORIDE [Interacting]
     Active Substance: METFORMIN HYDROCHLORIDE
     Indication: Type 2 diabetes mellitus
     Dosage: 0.5 G, BID
     Route: 048
     Dates: start: 20240722, end: 20250704

REACTIONS (3)
  - Hypoglycaemia [Recovering/Resolving]
  - Unresponsive to stimuli [Recovered/Resolved]
  - Hyperhidrosis [None]

NARRATIVE: CASE EVENT DATE: 20250705
